FAERS Safety Report 10239513 (Version 1)
Quarter: 2014Q2

REPORT INFORMATION
  Report Type: Spontaneous
  Country: HR (occurrence: HR)
  Receive Date: 20140616
  Receipt Date: 20140616
  Transmission Date: 20141212
  Serious: Yes (Other)
  Sender: FDA-Public Use
  Company Number: HR-PFIZER INC-2014159675

PATIENT
  Age: 72 Year
  Sex: Female

DRUGS (5)
  1. SORTIS [Suspect]
     Indication: HYPERLIPIDAEMIA
     Dosage: 20 MG, 1X/DAY
     Route: 048
     Dates: end: 201310
  2. CO-DIOVAN [Concomitant]
     Indication: HYPERTENSION
     Dosage: 25 MG/160 MG, 1X/DAY
     Route: 048
  3. NEBILET [Concomitant]
     Indication: HYPERTENSION
     Dosage: 5 MG, 1X/DAY
     Route: 048
  4. AMLOPIN [Concomitant]
     Indication: HYPERTENSION
     Dosage: 5 MG, 1X/DAY
     Route: 048
  5. FURSEMID [Concomitant]
     Dosage: 40 MG, 2X/WEEK
     Route: 048

REACTIONS (5)
  - Weight increased [Recovered/Resolved]
  - Diarrhoea [Recovered/Resolved]
  - Muscle spasms [Recovered/Resolved]
  - Cough [Recovered/Resolved]
  - Apnoea [Recovered/Resolved]
